FAERS Safety Report 25123469 (Version 1)
Quarter: 2025Q1

REPORT INFORMATION
  Report Type: Spontaneous
  Country: US (occurrence: US)
  Receive Date: 20250326
  Receipt Date: 20250326
  Transmission Date: 20250409
  Serious: No
  Sender: GRIFOLS
  Company Number: US-IGSA-BIG0029422

PATIENT
  Age: 71 Year
  Sex: Female
  Weight: 46.259 kg

DRUGS (9)
  1. PROLASTIN-C LIQUID [Suspect]
     Active Substance: .ALPHA.1-PROTEINASE INHIBITOR HUMAN
     Indication: Alpha-1 antitrypsin deficiency
     Dosage: 2823 MILLIGRAM, Q.WK.
     Route: 042
     Dates: start: 20240609
  2. EPINEPHRINE [Concomitant]
     Active Substance: EPINEPHRINE
  3. DEXTROSE\SODIUM CHLORIDE [Concomitant]
     Active Substance: DEXTROSE\SODIUM CHLORIDE
  4. SODIUM CHLORIDE;VANCOMYCIN [Concomitant]
  5. VITAMINS NOS [Concomitant]
     Active Substance: VITAMINS
  6. AZITHROMYCIN [Concomitant]
     Active Substance: AZITHROMYCIN
  7. ETHAMBUTOL HYDROCHLORIDE [Concomitant]
     Active Substance: ETHAMBUTOL HYDROCHLORIDE
  8. RIFAMPIN [Concomitant]
     Active Substance: RIFAMPIN
  9. TRELEGY ELLIPTA [Concomitant]
     Active Substance: FLUTICASONE FUROATE\UMECLIDINIUM BROMIDE\VILANTEROL TRIFENATATE

REACTIONS (3)
  - Fatigue [Unknown]
  - Incorrect drug administration rate [Unknown]
  - Somnolence [Unknown]

NARRATIVE: CASE EVENT DATE: 20240609
